FAERS Safety Report 4480188-7 (Version None)
Quarter: 2004Q4

REPORT INFORMATION
  Report Type: 
  Country: None (occurrence: None)
  Receive Date: 20041018
  Receipt Date: 20041008
  Transmission Date: 20050328
  Serious: Yes (Hospitalization)
  Sender: FDA-Public Use
  Company Number: STA-AE-04-MTX-395

PATIENT
  Age: 58 Year
  Sex: Male

DRUGS (2)
  1. METHOTREXATE [Suspect]
     Indication: RHEUMATOID ARTHRITIS
     Dosage: 30 MG 1X PER 1 WK, ORAL
     Route: 048
     Dates: start: 19950501
  2. CYCLOSPORINE [Suspect]
     Dosage: 225 MG 1X PER 1 DAY, ORAL
     Route: 048
     Dates: start: 20011126

REACTIONS (3)
  - FATIGUE [None]
  - MENINGITIS VIRAL [None]
  - NEUTROPENIA [None]
